FAERS Safety Report 18318093 (Version 5)
Quarter: 2020Q4

REPORT INFORMATION
  Report Type: Spontaneous
  Country: US (occurrence: US)
  Receive Date: 20200928
  Receipt Date: 20201113
  Transmission Date: 20210113
  Serious: Yes (Other)
  Sender: FDA-Public Use
  Company Number: US-PFIZER INC-2020368695

PATIENT
  Age: 40 Year
  Sex: Female

DRUGS (1)
  1. LEVOXYL [Suspect]
     Active Substance: LEVOTHYROXINE SODIUM
     Indication: THYROID CANCER RECURRENT
     Dosage: UNK, 3X/DAY (INITIALLY STATES ONE AND A HALF 200 MCG TABLETS THREE TIMES DAILY)
     Route: 060
     Dates: start: 1990

REACTIONS (14)
  - Off label use [Unknown]
  - Hypoacusis [Unknown]
  - Cardiac disorder [Unknown]
  - Papillary thyroid cancer [Unknown]
  - Intentional product misuse [Unknown]
  - Tendon disorder [Unknown]
  - Wheezing [Unknown]
  - Swelling [Unknown]
  - Drug ineffective [Unknown]
  - Intentional product use issue [Unknown]
  - Drug level decreased [Unknown]
  - Hypertension [Unknown]
  - Sleep disorder [Unknown]
  - Frustration tolerance decreased [Unknown]

NARRATIVE: CASE EVENT DATE: 1995
